FAERS Safety Report 10480293 (Version 1)
Quarter: 2014Q3

REPORT INFORMATION
  Report Type: Spontaneous
  Country: BR (occurrence: BR)
  Receive Date: 20140929
  Receipt Date: 20140929
  Transmission Date: 20150326
  Serious: Yes (Hospitalization)
  Sender: FDA-Public Use
  Company Number: BR-SHIRE-BR201406176

PATIENT
  Age: 24 Year
  Sex: Male

DRUGS (2)
  1. MESACOL MMX [Suspect]
     Active Substance: MESALAMINE
     Indication: CROHN^S DISEASE
     Dosage: UNK UNK, UNKNOWN
     Route: 048
     Dates: start: 201408, end: 20140902
  2. PREDNISOLONE. [Concomitant]
     Active Substance: PREDNISOLONE
     Indication: PRODUCT USED FOR UNKNOWN INDICATION
     Dosage: 20 MG, UNKNOWN
     Route: 065
     Dates: end: 20140902

REACTIONS (5)
  - Pruritus [Recovered/Resolved]
  - Generalised erythema [Recovered/Resolved]
  - Ocular hyperaemia [Recovered/Resolved]
  - Off label use [Recovered/Resolved]
  - Pain in extremity [Recovered/Resolved]

NARRATIVE: CASE EVENT DATE: 201408
